FAERS Safety Report 18360506 (Version 2)
Quarter: 2020Q4

REPORT INFORMATION
  Report Type: Spontaneous
  Country: US (occurrence: US)
  Receive Date: 20201008
  Receipt Date: 20201104
  Transmission Date: 20210114
  Serious: No
  Sender: FDA-Public Use
  Company Number: US-PFIZER INC-2020385867

PATIENT
  Age: 62 Year
  Sex: Female

DRUGS (1)
  1. IBRANCE [Suspect]
     Active Substance: PALBOCICLIB
     Indication: BREAST CANCER
     Dosage: 125 MG, CYCLIC (ONE DAILY FOR 21 DAYS THEN 7 DAYS OFF)
     Dates: start: 20190522

REACTIONS (3)
  - Alopecia [Unknown]
  - Constipation [Unknown]
  - Arthritis [Unknown]
